FAERS Safety Report 8817759 (Version 1)
Quarter: 2012Q4

REPORT INFORMATION
  Report Type: 
  Country: US (occurrence: US)
  Receive Date: 20121002
  Receipt Date: 20121002
  Transmission Date: 20130627
  Serious: No
  Sender: FDA-Public Use
  Company Number: US-009507513-1210USA000537

PATIENT
  Sex: Female

DRUGS (2)
  1. EMEND [Suspect]
     Indication: PROPHYLAXIS OF NAUSEA AND VOMITING
     Dosage: 125 mg, on day 1
     Route: 048
     Dates: start: 201009, end: 201009
  2. EMEND [Suspect]
     Dosage: 80 mg, on days 2 and 3
     Route: 048
     Dates: start: 201009, end: 201009

REACTIONS (1)
  - Therapy responder [Unknown]
